FAERS Safety Report 4526549-9 (Version None)
Quarter: 2004Q4

REPORT INFORMATION
  Report Type: 
  Country: None (occurrence: None)
  Receive Date: 20041210
  Receipt Date: 20041129
  Transmission Date: 20050328
  Serious: Yes (Hospitalization)
  Sender: FDA-Public Use
  Company Number: 2004101082

PATIENT
  Age: 81 Year
  Sex: Female

DRUGS (1)
  1. ALPRAZOLAM [Suspect]
     Indication: ILL-DEFINED DISORDER
     Dosage: 0.5 MG (0.5 MG), ORAL
     Route: 048
     Dates: start: 20040827, end: 20040904

REACTIONS (4)
  - ACUTE RESPIRATORY FAILURE [None]
  - CENTRAL-ALVEOLAR HYPOVENTILATION [None]
  - HYPOXIA [None]
  - OVERDOSE [None]
